FAERS Safety Report 18941242 (Version 2)
Quarter: 2021Q1

REPORT INFORMATION
  Report Type: Spontaneous
  Country: US (occurrence: US)
  Receive Date: 20210225
  Receipt Date: 20210308
  Transmission Date: 20210420
  Serious: Yes (Hospitalization, Other)
  Sender: FDA-Public Use
  Company Number: US-PFIZER INC-2021168055

PATIENT
  Age: 56 Year
  Sex: Female

DRUGS (3)
  1. DILANTIN [Suspect]
     Active Substance: PHENYTOIN
     Dosage: 500 MG, DAILY (100MG TWO IN THE MORNING AND THREE AT NIGHT)
  2. DILANTIN [Suspect]
     Active Substance: PHENYTOIN
     Dosage: 200 MG, 2X/DAY (JUST BEEN TAKING TWO AT NIGHT,SHE DID NOT MESS WITH MORNING DOSE)
  3. DILANTIN [Suspect]
     Active Substance: PHENYTOIN
     Dosage: UNK
     Dates: end: 201904

REACTIONS (5)
  - Joint swelling [Unknown]
  - Intentional product use issue [Unknown]
  - Limb injury [Unknown]
  - Malaise [Unknown]
  - Seizure [Unknown]

NARRATIVE: CASE EVENT DATE: 201904
